FAERS Safety Report 6160911-6 (Version None)
Quarter: 2009Q2

REPORT INFORMATION
  Report Type: 
  Country: None (occurrence: None)
  Receive Date: 20090420
  Receipt Date: 20090410
  Transmission Date: 20091009
  Serious: Yes (Hospitalization, Other)
  Sender: FDA-Public Use
  Company Number: JP-ABBOTT-03P-087-0212201-00

PATIENT
  Sex: Male

DRUGS (19)
  1. KALETRA [Suspect]
     Indication: HIV INFECTION
     Route: 048
     Dates: start: 20020123, end: 20040309
  2. KALETRA [Suspect]
  3. KALETRA [Suspect]
     Indication: HIV INFECTION
     Route: 048
     Dates: start: 20070507
  4. NORVIR [Suspect]
     Indication: HIV INFECTION
     Route: 048
     Dates: start: 20060104, end: 20070427
  5. STAVUDINE [Suspect]
     Indication: HIV INFECTION
     Route: 048
     Dates: start: 20020123, end: 20060103
  6. STAVUDINE [Suspect]
     Route: 048
     Dates: start: 20010401
  7. STAVUDINE [Suspect]
     Route: 048
     Dates: start: 20070507
  8. DIDANOSINE [Suspect]
     Indication: HIV INFECTION
     Route: 048
     Dates: start: 20010801, end: 20020123
  9. EFAVIRENZ [Suspect]
     Indication: HIV INFECTION
     Route: 048
     Dates: start: 20010801, end: 20020123
  10. LAMIVUDINE [Suspect]
     Indication: HIV INFECTION
     Route: 048
     Dates: start: 20020123, end: 20060103
  11. LAMIVUDINE [Suspect]
     Route: 048
     Dates: start: 20010401, end: 20010801
  12. LAMIVUDINE [Suspect]
     Route: 048
     Dates: start: 20070507
  13. ATAZANAVIR SULFATE [Suspect]
     Indication: HIV INFECTION
     Route: 048
     Dates: start: 20040310, end: 20060103
  14. ATAZANAVIR SULFATE [Suspect]
     Route: 048
     Dates: start: 20060104, end: 20070427
  15. EMTRICITABIN/TENOFOVIR [Suspect]
     Indication: HIV INFECTION
     Route: 048
     Dates: start: 20060104, end: 20070427
  16. ANTIHEMOPHILIC FACTOR (HUMAN) [Concomitant]
     Indication: FACTOR VIII DEFICIENCY
     Route: 042
     Dates: start: 20010401
  17. ANTIHEMOPHILIC FACTOR (HUMAN) [Concomitant]
  18. NELFINAVIR [Concomitant]
     Indication: HIV INFECTION
     Route: 048
     Dates: start: 20010401, end: 20010801
  19. ZIDOVUDINE [Concomitant]
     Indication: HIV INFECTION
     Route: 048
     Dates: start: 20011022, end: 20020123

REACTIONS (2)
  - HEPATITIS C [None]
  - HYPERGLYCAEMIA [None]
